FAERS Safety Report 19942387 (Version 1)
Quarter: 2021Q4

REPORT INFORMATION
  Report Type: Spontaneous
  Country: US (occurrence: US)
  Receive Date: 20211011
  Receipt Date: 20211011
  Transmission Date: 20220303
  Serious: Yes (Other)
  Sender: FDA-Public Use
  Company Number: None

PATIENT
  Age: 51 Year
  Sex: Female
  Weight: 66.15 kg

DRUGS (3)
  1. COPPERTONE PURE AND SIMPLE KIDS SPF 50 [Suspect]
     Active Substance: ZINC OXIDE
     Indication: Prophylaxis against solar radiation
     Dosage: ?          QUANTITY:1 SPRAY(S);
     Route: 061
     Dates: start: 20210508, end: 20210605
  2. BUSPAR [Concomitant]
     Active Substance: BUSPIRONE HYDROCHLORIDE
  3. ONE DAILY MULTIVITAMIN [Concomitant]

REACTIONS (15)
  - Dizziness [None]
  - Nausea [None]
  - Diarrhoea [None]
  - Chills [None]
  - Myalgia [None]
  - Headache [None]
  - Neuralgia [None]
  - Rash vesicular [None]
  - Euphoric mood [None]
  - Balance disorder [None]
  - Impaired work ability [None]
  - Loss of personal independence in daily activities [None]
  - Fatigue [None]
  - Hot flush [None]
  - Product contamination [None]

NARRATIVE: CASE EVENT DATE: 20210510
